FAERS Safety Report 25008880 (Version 1)
Quarter: 2025Q1

REPORT INFORMATION
  Report Type: Spontaneous
  Country: FR (occurrence: None)
  Receive Date: 20250225
  Receipt Date: 20250225
  Transmission Date: 20250408
  Serious: Yes (Death)
  Sender: ORION
  Company Number: FR-Orion Corporation ORION PHARMA-TREX2025-0037

PATIENT

DRUGS (1)
  1. METHOTREXATE [Suspect]
     Active Substance: METHOTREXATE
     Indication: Pemphigoid

REACTIONS (5)
  - Skin wound [Fatal]
  - Thrombocytopenia [Fatal]
  - Neutropenia [Fatal]
  - Diarrhoea [Fatal]
  - Product use in unapproved indication [Unknown]
